FAERS Safety Report 7731511-9 (Version None)
Quarter: 2011Q3

REPORT INFORMATION
  Report Type: 
  Country: None (occurrence: None)
  Receive Date: 20110906
  Receipt Date: 20110607
  Transmission Date: 20111222
  Serious: Yes (Other)
  Sender: FDA-Public Use
  Company Number: US-AMGEN-USASP2011018566

PATIENT
  Age: 71 Year
  Sex: Male
  Weight: 65.76 kg

DRUGS (7)
  1. XGEVA [Suspect]
     Indication: METASTASES TO BONE
     Dosage: 120 MG, Q4WK
     Dates: start: 20110401
  2. DECADRON [Concomitant]
     Dosage: UNK
  3. DIGOXIN [Concomitant]
     Dosage: UNK
  4. TAXOL [Concomitant]
     Dosage: UNK
  5. PEPCID [Concomitant]
     Dosage: UNK
     Route: 042
  6. ZOFRAN [Concomitant]
  7. BENADRYL                           /00945501/ [Concomitant]
     Dosage: UNK

REACTIONS (1)
  - HYPOCALCAEMIA [None]
